FAERS Safety Report 18598610 (Version 1)
Quarter: 2020Q4

REPORT INFORMATION
  Report Type: Other
  Country: IT (occurrence: IT)
  Receive Date: 20201210
  Receipt Date: 20201210
  Transmission Date: 20210114
  Serious: Yes (Other)
  Sender: FDA-Public Use
  Company Number: IT-ROCHE-2726730

PATIENT
  Age: 44 Year
  Sex: Female

DRUGS (4)
  1. PLATINUM [Concomitant]
     Active Substance: PLATINUM
  2. ATEZOLIZUMAB. [Suspect]
     Active Substance: ATEZOLIZUMAB
     Indication: LUNG ADENOCARCINOMA STAGE IV
     Route: 065
  3. TRASTUZUMAB. [Suspect]
     Active Substance: TRASTUZUMAB
     Indication: LUNG ADENOCARCINOMA STAGE IV
     Route: 065
  4. PEMETREXED. [Concomitant]
     Active Substance: PEMETREXED

REACTIONS (4)
  - Drug ineffective [Unknown]
  - Intentional product use issue [Unknown]
  - Off label use [Unknown]
  - Lung neoplasm malignant [Unknown]
